FAERS Safety Report 5309852-4 (Version None)
Quarter: 2007Q2

REPORT INFORMATION
  Report Type: 
  Country: None (occurrence: None)
  Receive Date: 20070427
  Receipt Date: 20070418
  Transmission Date: 20071010
  Serious: Yes (Hospitalization)
  Sender: FDA-Public Use
  Company Number: PHHO2005IT18218

PATIENT
  Age: 59 Year
  Sex: Female
  Weight: 49 kg

DRUGS (1)
  1. TAMOXIFEN CITRATE [Suspect]
     Indication: BREAST CANCER
     Route: 048
     Dates: start: 20010201

REACTIONS (4)
  - CERVICITIS HUMAN PAPILLOMA VIRUS [None]
  - CONCOMITANT DISEASE PROGRESSION [None]
  - HYSTERECTOMY [None]
  - UTERINE PROLAPSE [None]
